FAERS Safety Report 15588029 (Version 2)
Quarter: 2019Q1

REPORT INFORMATION
  Report Type: Report from Study
  Country: US (occurrence: US)
  Receive Date: 20181105
  Receipt Date: 20190116
  Transmission Date: 20190417
  Serious: Yes (Hospitalization)
  Sender: FDA-Public Use
  Company Number: US-ACTELION-A-US2015-120710

PATIENT
  Age: 54 Year
  Sex: Female
  Weight: 129.25 kg

DRUGS (3)
  1. OPSUMIT [Suspect]
     Active Substance: MACITENTAN
     Indication: PULMONARY HYPERTENSION
     Dosage: 10 MG, QD
     Route: 048
     Dates: start: 20150406
  2. ADCIRCA [Concomitant]
     Active Substance: TADALAFIL
  3. TYVASO [Concomitant]
     Active Substance: TREPROSTINIL

REACTIONS (12)
  - Influenza [Unknown]
  - Dyspnoea [Unknown]
  - Agitation [Unknown]
  - Pyrexia [Unknown]
  - Asthenia [Unknown]
  - Anxiety [Unknown]
  - Dyspnoea exertional [Unknown]
  - Fatigue [Unknown]
  - Oxygen saturation decreased [Unknown]
  - Palpitations [Unknown]
  - Pneumonia [Unknown]
  - Chest pain [Unknown]
